FAERS Safety Report 6834561-X (Version None)
Quarter: 2010Q3

REPORT INFORMATION
  Report Type: 
  Country: None (occurrence: None)
  Receive Date: 20100712
  Receipt Date: 20070609
  Transmission Date: 20110219
  Serious: Yes (Other)
  Sender: FDA-Public Use
  Company Number: US-PFIZER INC-2007033200

PATIENT
  Sex: Female
  Weight: 50.8 kg

DRUGS (1)
  1. VARENICLINE [Suspect]
     Indication: SMOKING CESSATION THERAPY
     Route: 048
     Dates: start: 20070401

REACTIONS (3)
  - DIZZINESS [None]
  - HYPERHIDROSIS [None]
  - PALPITATIONS [None]
